FAERS Safety Report 6431709-6 (Version None)
Quarter: 2009Q4

REPORT INFORMATION
  Report Type: 
  Country: None (occurrence: None)
  Receive Date: 20091103
  Receipt Date: 20091019
  Transmission Date: 20100525
  Serious: Yes (Hospitalization)
  Sender: FDA-Public Use
  Company Number: 02100-JPN-05-0338

PATIENT
  Age: 74 Year
  Sex: Male
  Weight: 60.8 kg

DRUGS (12)
  1. PLETAL [Suspect]
     Indication: CEREBRAL INFARCTION
     Dosage: 100 MG, BID
     Route: 048
     Dates: start: 20040712, end: 20050603
  2. LOXONIN (LOXOPROFEN SODIUM) TABLET [Concomitant]
  3. FLIVAS (NAFTOPIDIL) TABLET [Concomitant]
  4. DEPAS (ETIZOLAM) TABLET [Concomitant]
  5. NEUTIONE (GLUATATHIONE) EYE DROPS [Concomitant]
  6. TARIVID (OFLOXACIN) EYE DROPS [Concomitant]
  7. FLUMETHOLON (FLUOROMETHOLONE) EYE DROPS [Concomitant]
  8. LENDORMIN (BROTIZOLAM) TABLET [Concomitant]
  9. LEBENIN (LACTOBACILLUS ACIDOPHILUS, LACTOBACILLUS BIFIDUS, LYOPHILIZED [Concomitant]
  10. BERIZYM (ENZYMES NOS) [Concomitant]
  11. PANTETHINE (PANTETHINE) [Concomitant]
  12. MAGNESIUM OXIDE (MAGNESIUM OXIDE) POWDER FOR ORAL SOLUTION [Concomitant]

REACTIONS (1)
  - GASTRIC CANCER [None]
